FAERS Safety Report 5458144-1 (Version None)
Quarter: 2007Q3

REPORT INFORMATION
  Report Type: 
  Country: None (occurrence: None)
  Receive Date: 20070917
  Receipt Date: 20070907
  Transmission Date: 20080115
  Serious: Yes (Hospitalization)
  Sender: FDA-Public Use
  Company Number: 160955ISR

PATIENT
  Age: 89 Year
  Sex: Female

DRUGS (1)
  1. AMIODARONE HCL [Suspect]
     Indication: ATRIAL FIBRILLATION
     Dosage: (200 MG) ORAL
     Route: 048
     Dates: start: 20070725, end: 20070813

REACTIONS (6)
  - EYE DISCHARGE [None]
  - MUCOUS MEMBRANE DISORDER [None]
  - PALLOR [None]
  - PYREXIA [None]
  - RASH GENERALISED [None]
  - VOMITING [None]
